FAERS Safety Report 5044334-9 (Version None)
Quarter: 2006Q2

REPORT INFORMATION
  Report Type: 
  Country: None (occurrence: None)
  Receive Date: 20060629
  Receipt Date: 20051024
  Transmission Date: 20061013
  Serious: Yes (Hospitalization)
  Sender: FDA-Public Use
  Company Number: 2005140172

PATIENT
  Age: 41 Year
  Sex: Female

DRUGS (3)
  1. PREGABALIN                 (PREGABALIN) [Suspect]
     Indication: PARTIAL SEIZURES
     Dosage: 600 MG ORAL
     Route: 048
     Dates: start: 20050725
  2. PHENYTOIN [Concomitant]
  3. CLONAZEPAM [Concomitant]

REACTIONS (5)
  - DYSMENORRHOEA [None]
  - ENDOMETRIOSIS [None]
  - FIBROCYSTIC BREAST DISEASE [None]
  - HAEMORRHAGIC OVARIAN CYST [None]
  - WEIGHT INCREASED [None]
